FAERS Safety Report 7222144-1 (Version None)
Quarter: 2011Q1

REPORT INFORMATION
  Report Type: 
  Country: None (occurrence: None)
  Receive Date: 20110103
  Receipt Date: 20101223
  Transmission Date: 20110831
  Serious: Yes (Other)
  Sender: FDA-Public Use
  Company Number: 017114

PATIENT
  Sex: Female
  Weight: 60 kg

DRUGS (11)
  1. CIMZIA [Suspect]
     Indication: RHEUMATOID ARTHRITIS
     Dosage: (200 MG 1X/2 WEEKS SUBCUTANEOUS)
     Route: 058
     Dates: start: 20100604, end: 20100820
  2. CIMZIA [Suspect]
     Indication: POLYARTHRITIS
     Dosage: (200 MG 1X/2 WEEKS SUBCUTANEOUS)
     Route: 058
     Dates: start: 20100604, end: 20100820
  3. L-THYROXINE /00068001/ [Concomitant]
  4. SIPRALEXA /01588501/ [Concomitant]
  5. SERTRALINE HYDROCHLORIDE [Concomitant]
  6. LEXOTAN [Concomitant]
  7. ALDACTAZINE [Concomitant]
  8. PANTOPRAZOLE [Concomitant]
  9. DEPRONAL [Concomitant]
  10. ACETAMINOPHEN [Concomitant]
  11. LENDORMIN [Concomitant]

REACTIONS (4)
  - GENITAL INFECTION FEMALE [None]
  - ORAL FUNGAL INFECTION [None]
  - TOOTH INFECTION [None]
  - VULVOVAGINAL MYCOTIC INFECTION [None]
